FAERS Safety Report 5669668-6 (Version None)
Quarter: 2008Q1

REPORT INFORMATION
  Report Type: 
  Country: None (occurrence: None)
  Receive Date: 20080317
  Receipt Date: 20080306
  Transmission Date: 20080703
  Serious: Yes (Other)
  Sender: FDA-Public Use
  Company Number: JP-ROCHE-546763

PATIENT
  Age: 3 Year
  Sex: Male
  Weight: 15 kg

DRUGS (3)
  1. TAMIFLU [Suspect]
     Dosage: DRUG REPORTED AS TAMIFLU DRY SYRUP 3%
     Route: 048
     Dates: start: 20080207
  2. PERIACTIN [Concomitant]
     Route: 048
     Dates: start: 20080207, end: 20080216
  3. ASVERIN [Concomitant]
     Route: 048
     Dates: start: 20080207, end: 20080212

REACTIONS (3)
  - ABDOMINAL PAIN [None]
  - ABNORMAL BEHAVIOUR [None]
  - CONVULSION [None]
